FAERS Safety Report 14660889 (Version 1)
Quarter: 2018Q1

REPORT INFORMATION
  Report Type: Spontaneous
  Country: JP (occurrence: JP)
  Receive Date: 20180320
  Receipt Date: 20180320
  Transmission Date: 20180509
  Serious: Yes (Hospitalization)
  Sender: FDA-Public Use
  Company Number: JP-BAYER-2018-052891

PATIENT
  Age: 86 Year
  Sex: Female
  Weight: 38.3 kg

DRUGS (11)
  1. TEPRENONE [Concomitant]
     Active Substance: TEPRENONE
  2. FLOMOX [Concomitant]
     Active Substance: CEFCAPENE PIVOXIL HYDROCHLORIDE HYDRATE
  3. MECOBALAMIN [Concomitant]
     Active Substance: METHYLCOBALAMIN
  4. VITANEURIN [FURSULTIAMINE HCL,HYDROXOCOBAL ACET,PYRIDOXAL PHOS,B2] [Concomitant]
  5. VOLTAREN [Suspect]
     Active Substance: DICLOFENAC SODIUM
     Indication: BACK PAIN
     Dosage: 1 DF, QD
     Route: 048
     Dates: end: 20180119
  6. CONIEL [Concomitant]
     Active Substance: BENIDIPINE HYDROCHLORIDE
  7. POLLAKISU [Concomitant]
  8. LOXONIN [Suspect]
     Active Substance: LOXOPROFEN SODIUM
     Indication: BACK PAIN
     Dosage: 1 DF, QD
     Route: 048
     Dates: end: 20180119
  9. BAYASPIRIN 100 MG [Suspect]
     Active Substance: ASPIRIN
     Indication: CEREBRAL INFARCTION
     Dosage: 1 DF, QD
     Route: 048
  10. MUCOSAL [Concomitant]
  11. LAC-B [Concomitant]
     Active Substance: BIFIDOBACTERIUM SPP.

REACTIONS (1)
  - Duodenal perforation [Recovered/Resolved]

NARRATIVE: CASE EVENT DATE: 20180119
